FAERS Safety Report 7019662-8 (Version None)
Quarter: 2010Q3

REPORT INFORMATION
  Report Type: 
  Country: None (occurrence: None)
  Receive Date: 20100928
  Receipt Date: 20100928
  Transmission Date: 20110219
  Serious: Yes (Hospitalization)
  Sender: FDA-Public Use
  Company Number: None

PATIENT
  Age: 28 Year
  Sex: Female
  Weight: 67.1324 kg

DRUGS (1)
  1. GEODON [Suspect]
     Indication: BIPOLAR DISORDER
     Dates: start: 20100530, end: 20100610

REACTIONS (12)
  - BURNING SENSATION [None]
  - CONVULSION [None]
  - DIZZINESS [None]
  - FEELING ABNORMAL [None]
  - HEADACHE [None]
  - HYPERACUSIS [None]
  - MUSCLE TIGHTNESS [None]
  - PANIC REACTION [None]
  - PARAESTHESIA [None]
  - PHOTOPHOBIA [None]
  - TREMOR [None]
  - VISUAL IMPAIRMENT [None]
